FAERS Safety Report 17189672 (Version 2)
Quarter: 2020Q1

REPORT INFORMATION
  Report Type: Report from Study
  Country: US (occurrence: US)
  Receive Date: 20191223
  Receipt Date: 20200212
  Transmission Date: 20200409
  Serious: No
  Sender: FDA-Public Use
  Company Number: NVSC2019US076561

PATIENT
  Sex: Female

DRUGS (1)
  1. TASIGNA [Suspect]
     Active Substance: NILOTINIB
     Indication: PRODUCT USED FOR UNKNOWN INDICATION
     Route: 048

REACTIONS (11)
  - Constipation [Unknown]
  - Insomnia [Unknown]
  - Fatigue [Unknown]
  - Diarrhoea [Unknown]
  - Muscle spasms [Unknown]
  - Rash [Unknown]
  - Nausea [Unknown]
  - Alopecia [Unknown]
  - Dry eye [Unknown]
  - Ocular hyperaemia [Unknown]
  - Peripheral swelling [Unknown]
